FAERS Safety Report 5140726-8 (Version None)
Quarter: 2006Q4

REPORT INFORMATION
  Report Type: 
  Country: None (occurrence: None)
  Receive Date: 20061025
  Receipt Date: 20061009
  Transmission Date: 20070319
  Serious: Yes (Hospitalization, Other)
  Sender: FDA-Public Use
  Company Number: 2005BH000076

PATIENT
  Age: 35 Year
  Sex: Female

DRUGS (1)
  1. GENTAMICIN [Suspect]
     Indication: PYELONEPHRITIS ACUTE

REACTIONS (6)
  - BARTTER'S SYNDROME [None]
  - DIPLOPIA [None]
  - ELECTROCARDIOGRAM CHANGE [None]
  - MUSCULAR WEAKNESS [None]
  - PARAESTHESIA [None]
  - TETANY [None]
